FAERS Safety Report 7353150-4 (Version None)
Quarter: 2011Q1

REPORT INFORMATION
  Report Type: 
  Country: None (occurrence: None)
  Receive Date: 20110315
  Receipt Date: 20110301
  Transmission Date: 20110831
  Serious: Yes (Hospitalization)
  Sender: FDA-Public Use
  Company Number: SK-WATSON-2011-03040

PATIENT
  Age: 54 Year
  Sex: Female

DRUGS (1)
  1. HEPARIN SODIUM [Suspect]
     Indication: ANTICOAGULANT THERAPY
     Dosage: UNK

REACTIONS (4)
  - SEPSIS [None]
  - PNEUMONIA [None]
  - THROMBOCYTOPENIA [None]
  - THROMBOSIS [None]
